FAERS Safety Report 7218401-5 (Version None)
Quarter: 2011Q1

REPORT INFORMATION
  Report Type: 
  Country: None (occurrence: None)
  Receive Date: 20110110
  Receipt Date: 20101229
  Transmission Date: 20110831
  Serious: Yes (Hospitalization)
  Sender: FDA-Public Use
  Company Number: IT-ELI_LILLY_AND_COMPANY-IT201012006510

PATIENT
  Sex: Female

DRUGS (1)
  1. ALIMTA [Suspect]
     Indication: ADENOCARCINOMA
     Dosage: 900 MG/M2 BODY SURFACE, UNKNOWN
     Route: 042
     Dates: start: 20100802, end: 20100824

REACTIONS (2)
  - DERMATITIS BULLOUS [None]
  - PANCYTOPENIA [None]
